FAERS Safety Report 4857414-5 (Version None)
Quarter: 2005Q4

REPORT INFORMATION
  Report Type: 
  Country: None (occurrence: None)
  Receive Date: 20051219
  Receipt Date: 20050303
  Transmission Date: 20060501
  Serious: No
  Sender: FDA-Public Use
  Company Number: US-GLAXOSMITHKLINE-A0548101A

PATIENT
  Sex: Female

DRUGS (7)
  1. NICODERM CQ [Suspect]
  2. COZAAR [Concomitant]
  3. ZOCOR [Concomitant]
  4. ASPIRIN [Concomitant]
  5. NORVASC [Concomitant]
  6. ADVAIR DISKUS 250/50 [Concomitant]
  7. PAIN MEDICATION [Concomitant]

REACTIONS (1)
  - DRUG INEFFECTIVE [None]
